FAERS Safety Report 9276580 (Version 3)
Quarter: 2013Q2

REPORT INFORMATION
  Report Type: Spontaneous
  Country: US (occurrence: None)
  Receive Date: 20130501
  Receipt Date: 20130528
  Transmission Date: 20140414
  Serious: Yes (Hospitalization, Other)
  Sender: FDA-Public Use
  Company Number: AUR-APL-2013-03554

PATIENT
  Age: 64 Year
  Sex: Female
  Weight: 74.83 kg

DRUGS (17)
  1. METFORMIN [Suspect]
     Indication: TYPE 2 DIABETES MELLITUS
  2. PAXIL [Suspect]
     Indication: PRODUCT USED FOR UNKNOWN INDICATION
  3. ALDACTONE [Suspect]
     Indication: FLUID RETENTION
     Dosage: 100 MG (50 MG, 2 IN 1 D), UNKNOWN
  4. ZOLOFT [Suspect]
     Indication: DEPRESSION
     Route: 048
  5. XANAX [Suspect]
     Indication: GENERALISED ANXIETY DISORDER
     Dosage: 1.5 MG (0.5 MG, 3 IN 1 D)
  6. PROPAFENONE (PROPAFENONE) [Concomitant]
  7. COUMADIN (WARFARIN SODIUM) [Concomitant]
  8. CARDIZEM CD (DILTIAZEM HYDROCHLORIDE) [Concomitant]
  9. DIGOXIN (DIGOXIN) [Concomitant]
  10. PREVACID (LANSOPRAZOLE) [Concomitant]
  11. SYNTHROID (LEVOTHYROXINE SODIUM) [Concomitant]
  12. SINGULAIR [Concomitant]
  13. PRANDIN (DEFLAZACORT) [Concomitant]
  14. MORPHINE [Concomitant]
  15. PROMETHAZINE (PROMETHAZINE) [Concomitant]
  16. VICTOZA (LIRAGLUTIDE) [Concomitant]
  17. BYETTA (EXENATIDE) [Concomitant]

REACTIONS (14)
  - Blood glucose increased [None]
  - Reaction to drug excipients [None]
  - Heart rate increased [None]
  - Cerebral haemorrhage [None]
  - Dissociation [None]
  - Disorientation [None]
  - Blood creatinine increased [None]
  - Malaise [None]
  - Myalgia [None]
  - Anaphylactic shock [None]
  - Treatment noncompliance [None]
  - Inappropriate schedule of drug administration [None]
  - Cardiac valve disease [None]
  - Product substitution issue [None]
